FAERS Safety Report 5660674-4 (Version None)
Quarter: 2008Q1

REPORT INFORMATION
  Report Type: 
  Country: None (occurrence: None)
  Receive Date: 20080311
  Receipt Date: 20080226
  Transmission Date: 20080703
  Serious: Yes (Hospitalization)
  Sender: FDA-Public Use
  Company Number: GB-GENENTECH-256958

PATIENT
  Sex: Female

DRUGS (3)
  1. BEVACIZUMAB [Suspect]
     Indication: OVARIAN CANCER
     Dosage: 450 MG, Q3W
     Route: 042
     Dates: start: 20070824
  2. CARBOPLATIN [Suspect]
     Indication: OVARIAN CANCER
     Dosage: 600 UNK, UNK
     Route: 042
     Dates: start: 20070824
  3. PACLITAXEL [Suspect]
     Indication: OVARIAN CANCER
     Dosage: 298 UNK, UNK
     Route: 042
     Dates: start: 20070824

REACTIONS (3)
  - HEADACHE [None]
  - PARAESTHESIA [None]
  - RASH [None]
